FAERS Safety Report 22531173 (Version 2)
Quarter: 2023Q2

REPORT INFORMATION
  Report Type: Report from Study
  Country: US (occurrence: US)
  Receive Date: 20230607
  Receipt Date: 20230609
  Transmission Date: 20230721
  Serious: Yes (Hospitalization)
  Sender: FDA-Public Use
  Company Number: US-PFIZER INC-US-GBT-021596

PATIENT
  Age: 24 Year
  Sex: Male

DRUGS (15)
  1. VOXELOTOR [Suspect]
     Active Substance: VOXELOTOR
     Indication: Sickle cell disease
     Dosage: 1500 MG, 1X/DAY
     Route: 048
     Dates: start: 20220408
  2. VOXELOTOR [Suspect]
     Active Substance: VOXELOTOR
     Indication: Anaemia
     Dosage: 1500 MG, 1X/DAY
     Route: 048
     Dates: start: 20230407, end: 20230413
  3. AMOXIL [Concomitant]
     Active Substance: AMOXICILLIN
     Indication: Asplenia
     Dosage: 250 MG, 2X/DAY
     Route: 048
     Dates: start: 20190322
  4. AMOXIL [Concomitant]
     Active Substance: AMOXICILLIN
     Indication: Prophylaxis
  5. VITAMIN D3 [Concomitant]
     Active Substance: CHOLECALCIFEROL
     Indication: Vitamin D deficiency
     Dosage: 25 UG, QD
     Route: 048
     Dates: start: 20221110
  6. HYDREA [Concomitant]
     Active Substance: HYDROXYUREA
     Indication: Sickle cell disease
     Dosage: ALTERNATE 1500/2000MG, QOD
     Route: 048
     Dates: start: 20170719
  7. HYDREA [Concomitant]
     Active Substance: HYDROXYUREA
     Indication: Prophylaxis
     Dosage: UNK, 2X/DAY
     Route: 048
     Dates: start: 20190322
  8. HYDREA [Concomitant]
     Active Substance: HYDROXYUREA
     Indication: Asplenia
  9. TYLENOL [Concomitant]
     Active Substance: ACETAMINOPHEN
     Indication: Sickle cell disease
     Dosage: 650 MG, EVERY 4 WEEKS
     Route: 048
     Dates: start: 20211217, end: 20230215
  10. ADAKVEO [Concomitant]
     Active Substance: CRIZANLIZUMAB-TMCA
     Indication: Sickle cell disease
     Dosage: 5 MG/KG, Q4W
     Route: 042
     Dates: start: 20211217, end: 20230215
  11. MS CONTIN [Concomitant]
     Active Substance: MORPHINE SULFATE
     Indication: Sickle cell disease
     Dosage: 60 MG, 2X/DAY
     Route: 048
     Dates: start: 20220531
  12. FOLVITE [Concomitant]
     Active Substance: FOLIC ACID
     Indication: Sickle cell disease
     Dosage: 1 MG, QD
     Route: 048
     Dates: start: 20121214
  13. NEURONTIN [Concomitant]
     Active Substance: GABAPENTIN
     Indication: Sickle cell disease
     Dosage: 600 MG, 3X/DAY
     Route: 048
     Dates: start: 20230215
  14. ROXICODONE [Concomitant]
     Active Substance: OXYCODONE HYDROCHLORIDE
     Indication: Sickle cell disease
     Dosage: 20 MG, ONCE DAILY AS NEEDED
     Route: 048
     Dates: start: 20230215
  15. APIXABAN [Concomitant]
     Active Substance: APIXABAN
     Indication: Deep vein thrombosis
     Dosage: 5 MG, 2X/DAY
     Route: 048
     Dates: start: 20230222

REACTIONS (4)
  - Sickle cell anaemia with crisis [Recovered/Resolved]
  - Acute chest syndrome [Recovered/Resolved]
  - Hypertransaminasaemia [Recovered/Resolved]
  - Sickle cell anaemia with crisis [Recovered/Resolved]

NARRATIVE: CASE EVENT DATE: 20230405
